FAERS Safety Report 8601062-8 (Version None)
Quarter: 2012Q3

REPORT INFORMATION
  Report Type: 
  Country: None (occurrence: None)
  Receive Date: 20120817
  Receipt Date: 20120806
  Transmission Date: 20120928
  Serious: Yes (Hospitalization)
  Sender: FDA-Public Use
  Company Number: JP-PERRIGO-12JP006786

PATIENT
  Age: 73 Year
  Sex: Female

DRUGS (3)
  1. METHIMAZOLE [Concomitant]
     Indication: HYPERTHYROIDISM
     Dosage: 5 MG, QD
     Route: 048
  2. DISOPYRAMIDE [Suspect]
     Indication: ARRHYTHMIA
     Dosage: 300 MG, QD
     Route: 048
  3. LANSOPRAZOLE [Suspect]
     Indication: GASTROOESOPHAGEAL REFLUX DISEASE
     Dosage: 15 MG, QD
     Route: 048

REACTIONS (5)
  - SYNCOPE [None]
  - TORSADE DE POINTES [None]
  - ELECTROCARDIOGRAM QT PROLONGED [None]
  - SINUS BRADYCARDIA [None]
  - DRUG INTERACTION [None]
